FAERS Safety Report 24707558 (Version 1)
Quarter: 2024Q4

REPORT INFORMATION
  Report Type: Spontaneous
  Country: AR (occurrence: AR)
  Receive Date: 20241206
  Receipt Date: 20241206
  Transmission Date: 20250115
  Serious: Yes (Hospitalization)
  Sender: BIOMARIN
  Company Number: AR-BIOMARINAP-AR-2024-162133

PATIENT

DRUGS (1)
  1. NAGLAZYME [Suspect]
     Active Substance: GALSULFASE
     Indication: Mucopolysaccharidosis VI
     Dosage: 3, UNK, QW
     Route: 042
     Dates: start: 20190401

REACTIONS (6)
  - Pyrexia [Recovered/Resolved]
  - Respiratory symptom [Recovered/Resolved]
  - Catheter site pain [Recovered/Resolved]
  - Rhinorrhoea [Recovered/Resolved]
  - Catheter site oedema [Recovered/Resolved]
  - Nasal congestion [Recovered/Resolved]

NARRATIVE: CASE EVENT DATE: 20241101
